FAERS Safety Report 12098849 (Version 1)
Quarter: 2016Q1

REPORT INFORMATION
  Report Type: Spontaneous
  Country: US (occurrence: US)
  Receive Date: 20160222
  Receipt Date: 20160222
  Transmission Date: 20160526
  Serious: No
  Sender: FDA-Public Use
  Company Number: US-BAYER-2016-034043

PATIENT
  Age: 86 Year
  Sex: Male
  Weight: 62.59 kg

DRUGS (1)
  1. MIRALAX [Suspect]
     Active Substance: POLYETHYLENE GLYCOL 3350
     Indication: CONSTIPATION
     Dosage: DOCTOR TOLD TO CONSUMER  TO TAKE 1 DOSE DAILY FOR 2 WEEKS; FIRST TIME OF USE WAS 5-6 YEARS AGO
     Route: 048

REACTIONS (1)
  - Product use issue [None]
